FAERS Safety Report 4297762-3 (Version None)
Quarter: 2004Q1

REPORT INFORMATION
  Report Type: 
  Country: None (occurrence: None)
  Receive Date: 20040126
  Receipt Date: 20030919
  Transmission Date: 20041129
  Serious: No
  Sender: FDA-Public Use
  Company Number: USA030947725

PATIENT
  Age: 15 Year
  Sex: Male
  Weight: 58 kg

DRUGS (3)
  1. STRATTERA [Suspect]
     Indication: ATTENTION DEFICIT/HYPERACTIVITY DISORDER
     Dosage: 40 MG/DAY
     Dates: start: 20030918
  2. PROZAC [Suspect]
     Indication: DEPRESSION
     Dosage: 20 MG/DAY
     Route: 048
     Dates: start: 20030101
  3. TRAZADONE (TRAZODONE) [Concomitant]

REACTIONS (3)
  - ANXIETY [None]
  - INSOMNIA [None]
  - TREMOR [None]
